FAERS Safety Report 5194178-2 (Version None)
Quarter: 2006Q4

REPORT INFORMATION
  Report Type: 
  Country: None (occurrence: None)
  Receive Date: 20061222
  Receipt Date: 20061211
  Transmission Date: 20070319
  Serious: Yes (Death)
  Sender: FDA-Public Use
  Company Number: 2006BI016646

PATIENT
  Age: 58 Year
  Sex: Female

DRUGS (12)
  1. AVONEX [Suspect]
     Indication: MULTIPLE SCLEROSIS
     Dosage: 30 UG; QW; IM
     Route: 030
     Dates: start: 19980801
  2. AVONEX [Suspect]
     Indication: MULTIPLE SCLEROSIS
     Dosage: 30 UG; QW; IM
     Route: 030
     Dates: end: 20060401
  3. INDEROL [Concomitant]
  4. DEPAKOTE [Concomitant]
  5. ACTONEL [Concomitant]
  6. DITROPAN [Concomitant]
  7. PREMARIN [Concomitant]
  8. LISINOPRIL [Concomitant]
  9. WELLBUTRIN [Concomitant]
  10. PROZAC [Concomitant]
  11. KLONIPIN [Concomitant]
  12. RISPERDAL [Concomitant]

REACTIONS (1)
  - INTESTINAL PERFORATION [None]
